FAERS Safety Report 15413121 (Version 5)
Quarter: 2021Q1

REPORT INFORMATION
  Report Type: Spontaneous
  Country: IN (occurrence: IN)
  Receive Date: 20180921
  Receipt Date: 20210324
  Transmission Date: 20210419
  Serious: Yes (Hospitalization, Other)
  Sender: FDA-Public Use
  Company Number: IN-PFIZER INC-2018360606

PATIENT
  Age: 62 Year
  Sex: Female

DRUGS (3)
  1. PALBACE [Suspect]
     Active Substance: PALBOCICLIB
     Dosage: 125 MG, 1X/DAY
     Route: 048
     Dates: start: 20171228
  2. LETROZOLE. [Suspect]
     Active Substance: LETROZOLE
     Indication: BREAST CANCER FEMALE
     Dosage: 2.5 MG, 1X/DAY
     Route: 048
  3. PALBACE [Suspect]
     Active Substance: PALBOCICLIB
     Indication: BREAST CANCER FEMALE
     Dosage: 125 MG, CYCLIC (ONCE A DAY; 21 DAYS ON WITH 1 WEEK OFF)
     Route: 048
     Dates: start: 20171208, end: 201712

REACTIONS (16)
  - Bone pain [Unknown]
  - Off label use [Unknown]
  - Pain in extremity [Unknown]
  - Insomnia [Unknown]
  - Amnesia [Unknown]
  - Thyroid disorder [Unknown]
  - Flatulence [Unknown]
  - Neoplasm progression [Unknown]
  - Thyroid pain [Unknown]
  - Hyperventilation [Unknown]
  - Gastric ulcer [Unknown]
  - Chronic obstructive pulmonary disease [Unknown]
  - Chest pain [Unknown]
  - Dyspepsia [Unknown]
  - Diabetes mellitus [Unknown]
  - Arthralgia [Unknown]

NARRATIVE: CASE EVENT DATE: 20171124
